FAERS Safety Report 18504074 (Version 1)
Quarter: 2020Q4

REPORT INFORMATION
  Report Type: Spontaneous
  Country: US (occurrence: US)
  Receive Date: 20201113
  Receipt Date: 20201113
  Transmission Date: 20210114
  Serious: No
  Sender: FDA-Public Use
  Company Number: US-SOMERSET-2020-US-000358

PATIENT
  Age: 60 Year
  Sex: Male

DRUGS (5)
  1. ATROVENT INHALER 12.9 G [Concomitant]
     Route: 048
     Dates: start: 2016
  2. MONTELUKAST 10 MG [Concomitant]
     Active Substance: MONTELUKAST SODIUM
     Route: 048
     Dates: start: 2016
  3. DORZOLAMIDE HYDROCHLORIDE AND TIMOLOL MALEATE OPHTHALMIC [Suspect]
     Active Substance: DORZOLAMIDE HYDROCHLORIDE\TIMOLOL MALEATE
     Route: 001
     Dates: start: 20200909, end: 20200909
  4. QVAR REDIHALER 50 MCG [Concomitant]
     Route: 048
     Dates: start: 2016
  5. LOSARTAN 25 MG [Concomitant]
     Active Substance: LOSARTAN
     Route: 048
     Dates: start: 2016

REACTIONS (2)
  - Muscle twitching [Recovered/Resolved]
  - Facial paralysis [Recovered/Resolved]

NARRATIVE: CASE EVENT DATE: 20200909
